FAERS Safety Report 8402903-X (Version None)
Quarter: 2012Q2

REPORT INFORMATION
  Report Type: 
  Country: None (occurrence: None)
  Receive Date: 20120601
  Receipt Date: 20120524
  Transmission Date: 20120825
  Serious: Yes (Hospitalization)
  Sender: FDA-Public Use
  Company Number: US-GLAXOSMITHKLINE-A0937845A

PATIENT
  Age: 61 Year
  Sex: Female
  Weight: 93.2 kg

DRUGS (6)
  1. ALBUTEROL [Concomitant]
  2. AVANDIA [Suspect]
     Indication: DIABETES MELLITUS
     Dosage: 4MG TWICE PER DAY
     Route: 048
     Dates: start: 20040801, end: 20070401
  3. GLYBURIDE [Concomitant]
  4. ADVAIR DISKUS 100/50 [Concomitant]
  5. ATENOLOL [Concomitant]
  6. COZAAR [Concomitant]

REACTIONS (1)
  - ISCHAEMIC STROKE [None]
